FAERS Safety Report 6241188-X (Version None)
Quarter: 2009Q2

REPORT INFORMATION
  Report Type: 
  Country: None (occurrence: None)
  Receive Date: 20090619
  Receipt Date: 20090619
  Transmission Date: 20091009
  Serious: No
  Sender: FDA-Public Use
  Company Number: None

PATIENT
  Age: 54 Year
  Sex: Female
  Weight: 54.4316 kg

DRUGS (2)
  1. ZICAM NASAL GEL [Suspect]
     Indication: NASOPHARYNGITIS
     Dosage: 2 SPRAYS TWICE DAILY NASAL
     Route: 045
     Dates: start: 20061002, end: 20080424
  2. ZICAM NASAL GEL [Suspect]
     Indication: PROPHYLAXIS
     Dosage: 2 SPRAYS TWICE DAILY NASAL
     Route: 045
     Dates: start: 20061002, end: 20080424

REACTIONS (3)
  - EPISTAXIS [None]
  - HYPOSMIA [None]
  - NASAL SEPTUM PERFORATION [None]
